FAERS Safety Report 7711881-8 (Version None)
Quarter: 2011Q3

REPORT INFORMATION
  Report Type: 
  Country: None (occurrence: None)
  Receive Date: 20110826
  Receipt Date: 20110803
  Transmission Date: 20111222
  Serious: No
  Sender: FDA-Public Use
  Company Number: TR-SANOFI-AVENTIS-2010SA027513

PATIENT
  Age: 37 Year
  Sex: Female
  Weight: 70 kg

DRUGS (3)
  1. FOLIC ACID [Suspect]
     Route: 048
     Dates: start: 20100501
  2. LEFLUNOMIDE [Suspect]
     Indication: RHEUMATOID ARTHRITIS
     Route: 048
     Dates: end: 20091001
  3. METHYLPREDNISOLONE [Suspect]
     Route: 048
     Dates: start: 20100508

REACTIONS (1)
  - MATERNAL EXPOSURE DURING PREGNANCY [None]
